FAERS Safety Report 9455210 (Version 1)
Quarter: 2013Q3

REPORT INFORMATION
  Report Type: Spontaneous
  Country: US (occurrence: US)
  Receive Date: 20130813
  Receipt Date: 20130813
  Transmission Date: 20140515
  Serious: Yes (Other)
  Sender: FDA-Public Use
  Company Number: US-BAYER-2013-094649

PATIENT
  Age: 62 Year
  Sex: Male
  Weight: 76.19 kg

DRUGS (15)
  1. BETASERON [Suspect]
     Dosage: 0.250 MG, QOD
     Route: 058
  2. SERTRALINE [Concomitant]
  3. TRAMADOL HYDROCHLORIDE [Concomitant]
  4. FAMOTIDINE [Concomitant]
  5. LISINOPRIL [Concomitant]
  6. NYSTATIN [Concomitant]
  7. ECOTRIN [Concomitant]
  8. BACLOFEN [Concomitant]
  9. METOPROLOL RETARD [Concomitant]
  10. OMEGA 3 [Concomitant]
  11. TOPIRAMATE [Concomitant]
  12. ATORVASTATIN [Concomitant]
  13. VITAMIN B12 [Concomitant]
  14. VITAMIN D2 [Concomitant]
  15. TIZANIDINE [Concomitant]

REACTIONS (7)
  - Multiple sclerosis relapse [Unknown]
  - Motor dysfunction [Unknown]
  - Drug ineffective [Unknown]
  - Oral candidiasis [Unknown]
  - Dry mouth [Unknown]
  - Oropharyngeal pain [Unknown]
  - Tongue coated [Unknown]
